FAERS Safety Report 19373922 (Version 1)
Quarter: 2021Q2

REPORT INFORMATION
  Report Type: Spontaneous
  Country: US (occurrence: US)
  Receive Date: 20210604
  Receipt Date: 20210604
  Transmission Date: 20210717
  Serious: No
  Sender: FDA-Public Use
  Company Number: None

PATIENT
  Age: 74 Year
  Sex: Male
  Weight: 91 kg

DRUGS (1)
  1. FLECAINIDE (FLECAINIDE ACETATE 100MG TAB) [Suspect]
     Active Substance: FLECAINIDE ACETATE
     Indication: ATRIAL FIBRILLATION
     Dates: start: 20210227, end: 20210326

REACTIONS (4)
  - Syncope [None]
  - Fall [None]
  - Hip fracture [None]
  - Dizziness [None]

NARRATIVE: CASE EVENT DATE: 20210325
